FAERS Safety Report 6748310-7 (Version None)
Quarter: 2010Q2

REPORT INFORMATION
  Report Type: 
  Country: None (occurrence: None)
  Receive Date: 20100601
  Receipt Date: 20100520
  Transmission Date: 20101027
  Serious: No
  Sender: FDA-Public Use
  Company Number: US-BIOGENIDEC-2010BI017336

PATIENT
  Sex: Female

DRUGS (4)
  1. TYSABRI [Suspect]
     Indication: MULTIPLE SCLEROSIS
     Route: 042
     Dates: start: 20090825, end: 20091201
  2. TYSABRI [Suspect]
     Route: 042
     Dates: start: 20090825, end: 20091201
  3. TYSABRI [Suspect]
     Route: 042
     Dates: start: 20100301
  4. TYSABRI [Suspect]
     Route: 042
     Dates: start: 20100301

REACTIONS (6)
  - ASTHENIA [None]
  - FALL [None]
  - FATIGUE [None]
  - GAIT DISTURBANCE [None]
  - MUSCLE SPASTICITY [None]
  - SKIN PAPILLOMA [None]
